FAERS Safety Report 12249064 (Version 4)
Quarter: 2017Q1

REPORT INFORMATION
  Report Type: Spontaneous
  Country: US (occurrence: US)
  Receive Date: 20160408
  Receipt Date: 20170124
  Transmission Date: 20170428
  Serious: Yes (Other)
  Sender: FDA-Public Use
  Company Number: US-SA-2016SA034217

PATIENT
  Age: 47 Year
  Sex: Female

DRUGS (4)
  1. MIRAPEX [Concomitant]
     Active Substance: PRAMIPEXOLE DIHYDROCHLORIDE
     Route: 065
  2. AUBAGIO [Suspect]
     Active Substance: TERIFLUNOMIDE
     Indication: MULTIPLE SCLEROSIS
     Route: 048
  3. LYRICA [Concomitant]
     Active Substance: PREGABALIN
     Route: 065
  4. AUBAGIO [Suspect]
     Active Substance: TERIFLUNOMIDE
     Indication: MULTIPLE SCLEROSIS
     Route: 048
     Dates: start: 20150923

REACTIONS (8)
  - Skin exfoliation [Unknown]
  - Nail disorder [Unknown]
  - Uterine cancer [Unknown]
  - Skin fissures [Unknown]
  - Alopecia [Unknown]
  - Dry skin [Unknown]
  - Unevaluable event [Unknown]
  - Onychoclasis [Unknown]

NARRATIVE: CASE EVENT DATE: 20160112
